FAERS Safety Report 9859133 (Version 1)
Quarter: 2014Q1

REPORT INFORMATION
  Report Type: Spontaneous
  Country: BR (occurrence: None)
  Receive Date: 20140129
  Receipt Date: 20140129
  Transmission Date: 20141002
  Serious: Yes (Hospitalization)
  Sender: FDA-Public Use
  Company Number: DSU-2014-00114

PATIENT
  Age: 69 Year
  Sex: Female

DRUGS (5)
  1. BENICAR HCT [Suspect]
     Indication: HYPERTENSION
     Dosage: 1 DOSAGE FORMS (1 DOSAGE FORMS, QD), PER ORAL
     Route: 048
     Dates: start: 2004
  2. ATENOLOL (ATENOLOL) (ATENOLOL) [Suspect]
     Indication: ARRHYTHMIA
     Route: 048
     Dates: start: 2004, end: 201311
  3. ATENOLOL (ATENOLOL) (ATENOLOL) [Suspect]
     Indication: BLOOD PRESSURE
     Route: 048
     Dates: start: 2004, end: 201311
  4. FESTONE [Suspect]
     Indication: BREAST CANCER
     Dosage: 1 DOSAGE FORMS (1 DOSAGE FORMS, QD)?
     Dates: start: 201301
  5. CRESTOR [Suspect]
     Indication: BLOOD CHOLESTEROL
     Route: 048
     Dates: start: 2012

REACTIONS (3)
  - Breast cancer [None]
  - Tachycardia [None]
  - Blood cholesterol abnormal [None]
